FAERS Safety Report 9396803 (Version 1)
Quarter: 2013Q3

REPORT INFORMATION
  Report Type: Spontaneous
  Country: IT (occurrence: IT)
  Receive Date: 20130712
  Receipt Date: 20130712
  Transmission Date: 20140515
  Serious: Yes (Death)
  Sender: FDA-Public Use
  Company Number: IT-BRISTOL-MYERS SQUIBB COMPANY-19091750

PATIENT
  Sex: 0

DRUGS (1)
  1. ELIQUIS [Suspect]

REACTIONS (1)
  - Pulmonary embolism [Fatal]
